FAERS Safety Report 19795392 (Version 4)
Quarter: 2022Q1

REPORT INFORMATION
  Report Type: Spontaneous
  Country: BR (occurrence: BR)
  Receive Date: 20210907
  Receipt Date: 20220203
  Transmission Date: 20220424
  Serious: Yes (Death, Other)
  Sender: FDA-Public Use
  Company Number: BR-BOEHRINGERINGELHEIM-2021-BI-125412

PATIENT
  Age: 77 Year
  Sex: Male

DRUGS (4)
  1. PRADAXA [Suspect]
     Active Substance: DABIGATRAN ETEXILATE MESYLATE
     Indication: Product used for unknown indication
     Dosage: TWICE DAILY
  2. PALONOSETRON HYDROCHLORIDE [Suspect]
     Active Substance: PALONOSETRON HYDROCHLORIDE
     Indication: Hepatic cancer
  3. OXALIPLATIN [Suspect]
     Active Substance: OXALIPLATIN
     Indication: Hepatic cancer
  4. LEUCOVORIN CALCIUM [Suspect]
     Active Substance: LEUCOVORIN CALCIUM
     Indication: Hepatic cancer

REACTIONS (5)
  - Death [Fatal]
  - Hepatic cancer [Unknown]
  - Fatigue [Unknown]
  - Drug interaction [Unknown]
  - International normalised ratio abnormal [Unknown]
